FAERS Safety Report 22988511 (Version 2)
Quarter: 2023Q4

REPORT INFORMATION
  Report Type: Spontaneous
  Country: JP (occurrence: JP)
  Receive Date: 20230926
  Receipt Date: 20231005
  Transmission Date: 20240110
  Serious: No
  Sender: FDA-Public Use
  Company Number: JP-MSD-M2023-39226

PATIENT
  Age: 76 Year
  Sex: Male

DRUGS (2)
  1. LAGEVRIO [Suspect]
     Active Substance: MOLNUPIRAVIR
     Indication: COVID-19 treatment
     Dosage: 800 MILLIGRAM, BID
     Route: 048
     Dates: start: 20230914, end: 20230915
  2. LAGEVRIO [Suspect]
     Active Substance: MOLNUPIRAVIR
     Dosage: 4800 MILLIGRAM, ONCE
     Route: 048
     Dates: start: 20230916, end: 20230916

REACTIONS (3)
  - Cognitive disorder [Unknown]
  - Abnormal behaviour [Unknown]
  - Overdose [Unknown]

NARRATIVE: CASE EVENT DATE: 20230916
